FAERS Safety Report 5595272-4 (Version None)
Quarter: 2008Q1

REPORT INFORMATION
  Report Type: 
  Country: None (occurrence: None)
  Receive Date: 20080117
  Receipt Date: 20080109
  Transmission Date: 20080703
  Serious: Yes (Other)
  Sender: FDA-Public Use
  Company Number: BR-PFIZER INC-2007106354

PATIENT
  Sex: Female
  Weight: 53 kg

DRUGS (5)
  1. LIPITOR [Suspect]
     Indication: BLOOD CHOLESTEROL ABNORMAL
     Route: 048
  2. KETOROLAC TROMETHAMINE [Concomitant]
     Dates: start: 20071001, end: 20071201
  3. ENZYMES [Concomitant]
     Dates: start: 20071001, end: 20071201
  4. CAPTOPRIL [Concomitant]
     Route: 048
  5. AAS [Concomitant]
     Route: 048

REACTIONS (4)
  - BLOOD PRESSURE INCREASED [None]
  - BRONCHITIS [None]
  - HALLUCINATION [None]
  - MALAISE [None]
